FAERS Safety Report 5519221-X (Version None)
Quarter: 2007Q4

REPORT INFORMATION
  Report Type: 
  Country: None (occurrence: None)
  Receive Date: 20071116
  Receipt Date: 20071105
  Transmission Date: 20080405
  Serious: Yes (Other)
  Sender: FDA-Public Use
  Company Number: CA-AMGEN-KDL251396

PATIENT
  Sex: Female

DRUGS (1)
  1. ENBREL [Suspect]
     Indication: RHEUMATOID ARTHRITIS
     Route: 058
     Dates: start: 20071105

REACTIONS (5)
  - ANXIETY [None]
  - DIZZINESS [None]
  - DYSPNOEA [None]
  - NERVOUSNESS [None]
  - SYNCOPE [None]
